FAERS Safety Report 4690231-8 (Version None)
Quarter: 2005Q2

REPORT INFORMATION
  Report Type: 
  Country: None (occurrence: None)
  Receive Date: 20050615
  Receipt Date: 20050602
  Transmission Date: 20051028
  Serious: Yes (Hospitalization)
  Sender: FDA-Public Use
  Company Number: FR-ROCHE-406545

PATIENT
  Sex: Female
  Weight: 4.8 kg

DRUGS (13)
  1. RIVOTRIL [Suspect]
     Indication: DRUG USE FOR UNKNOWN INDICATION
  2. RIVOTRIL [Suspect]
  3. TERALITHE [Suspect]
     Indication: DRUG USE FOR UNKNOWN INDICATION
     Dates: end: 20040215
  4. TERALITHE [Suspect]
     Dates: start: 20040825
  5. TERALITHE [Suspect]
     Dates: start: 20050112
  6. LARGACTIL [Suspect]
     Indication: DRUG USE FOR UNKNOWN INDICATION
  7. LARGACTIL [Suspect]
     Dates: start: 20041110
  8. LARGACTIL [Suspect]
     Dates: start: 20050112
  9. LARGACTIL [Suspect]
     Dosage: AFTER THE BIRTH.
  10. AKINETON [Suspect]
     Indication: DRUG USE FOR UNKNOWN INDICATION
     Dates: end: 20031015
  11. AKINETON [Suspect]
     Dates: start: 20040908, end: 20041110
  12. RISPERDAL [Concomitant]
  13. HALDOL [Concomitant]

REACTIONS (3)
  - DRUG EXPOSURE DURING PREGNANCY [None]
  - FOETAL MACROSOMIA [None]
  - SOMNOLENCE NEONATAL [None]
